FAERS Safety Report 6485198-6 (Version None)
Quarter: 2009Q4

REPORT INFORMATION
  Report Type: 
  Country: None (occurrence: None)
  Receive Date: 20091209
  Receipt Date: 20090616
  Transmission Date: 20100525
  Serious: No
  Sender: FDA-Public Use
  Company Number: US-AMGEN-KDL351902

PATIENT
  Sex: Male

DRUGS (2)
  1. ENBREL [Suspect]
     Indication: PSORIASIS
     Dates: start: 20070101
  2. VITAMINS [Concomitant]

REACTIONS (4)
  - BLOOD URINE PRESENT [None]
  - BRONCHITIS [None]
  - FLANK PAIN [None]
  - NASOPHARYNGITIS [None]
